FAERS Safety Report 4714890-6 (Version None)
Quarter: 2005Q3

REPORT INFORMATION
  Report Type: 
  Country: None (occurrence: None)
  Receive Date: 20050713
  Receipt Date: 20030705
  Transmission Date: 20060218
  Serious: Yes (Hospitalization, Other)
  Sender: FDA-Public Use
  Company Number: FRWYE796705JUL05

PATIENT
  Age: 84 Year
  Sex: Female

DRUGS (8)
  1. BISOPROLOL FUMARATE [Suspect]
     Indication: ATRIAL FIBRILLATION
     Route: 048
     Dates: start: 20050322, end: 20050403
  2. BISOPROLOL FUMARATE [Suspect]
     Indication: ATRIAL FLUTTER
     Route: 048
     Dates: start: 20050322, end: 20050403
  3. DIGOXIN [Suspect]
     Indication: ATRIAL FIBRILLATION
     Route: 048
     Dates: start: 20050322, end: 20050403
  4. DIGOXIN [Suspect]
     Indication: ATRIAL FLUTTER
     Route: 048
     Dates: start: 20050322, end: 20050403
  5. PREVISCAN (FLUINDIONE) [Suspect]
     Indication: ATRIAL FIBRILLATION
     Dates: start: 20050322, end: 20050403
  6. PREVISCAN (FLUINDIONE) [Suspect]
     Indication: ATRIAL FLUTTER
     Dates: start: 20050322, end: 20050403
  7. FENOFIBRATE [Concomitant]
  8. HYPERIUM (HYPERIUM) [Concomitant]

REACTIONS (2)
  - ACUTE GENERALISED EXANTHEMATOUS PUSTULOSIS [None]
  - URTICARIA [None]
